FAERS Safety Report 15211679 (Version 2)
Quarter: 2018Q4

REPORT INFORMATION
  Report Type: Report from Study
  Country: US (occurrence: US)
  Receive Date: 20180729
  Receipt Date: 20181009
  Transmission Date: 20190204
  Serious: Yes (Other)
  Sender: FDA-Public Use
  Company Number: PHEH2018US030270

PATIENT
  Sex: Male

DRUGS (1)
  1. ENTRESTO [Suspect]
     Active Substance: SACUBITRIL\VALSARTAN
     Indication: CARDIAC FAILURE
     Dosage: (TAKING HALF OF HIS PILLS NOT THE TWO, TWICE A DAY)
     Route: 048

REACTIONS (13)
  - Liver disorder [Unknown]
  - Weight increased [Unknown]
  - Heart rate abnormal [Unknown]
  - Nasopharyngitis [Unknown]
  - Thrombosis [Unknown]
  - Dental caries [Unknown]
  - Atrial fibrillation [Unknown]
  - Incorrect dose administered [Unknown]
  - Cough [Unknown]
  - Angina pectoris [Unknown]
  - Fatigue [Unknown]
  - Abdominal pain upper [Unknown]
  - Wrong technique in product usage process [Unknown]
